FAERS Safety Report 10844849 (Version 1)
Quarter: 2015Q1

REPORT INFORMATION
  Report Type: Spontaneous
  Country: FR (occurrence: FR)
  Receive Date: 20150220
  Receipt Date: 20150220
  Transmission Date: 20150721
  Serious: Yes (Other)
  Sender: FDA-Public Use
  Company Number: FR-AMGEN-FRASP2015015052

PATIENT
  Age: 70 Year
  Sex: Female

DRUGS (4)
  1. AROMASIN [Concomitant]
     Active Substance: EXEMESTANE
  2. XGEVA [Suspect]
     Active Substance: DENOSUMAB
     Indication: BREAST CANCER METASTATIC
     Dosage: 120 MG, UNK
     Route: 065
  3. CALCIUM [Concomitant]
     Active Substance: CALCIUM
  4. VITAMIN D                          /00107901/ [Concomitant]
     Active Substance: ERGOCALCIFEROL

REACTIONS (4)
  - Blood thyroid stimulating hormone increased [Unknown]
  - Metastases to bone [Unknown]
  - Pain in extremity [Unknown]
  - Paraesthesia [Unknown]
